FAERS Safety Report 9360089 (Version 2)
Quarter: 2016Q3

REPORT INFORMATION
  Report Type: Spontaneous
  Country: US (occurrence: US)
  Receive Date: 20130621
  Receipt Date: 20160829
  Transmission Date: 20161109
  Serious: Yes (Hospitalization)
  Sender: FDA-Public Use
  Company Number: US-RANBAXY-2013US-70379

PATIENT
  Age: 19 Year
  Sex: Female

DRUGS (1)
  1. AMLODIPINE [Suspect]
     Active Substance: AMLODIPINE BESYLATE
     Indication: PRODUCT USED FOR UNKNOWN INDICATION
     Dosage: 20 DF, SINGLE
     Route: 048

REACTIONS (6)
  - Toxicity to various agents [Recovering/Resolving]
  - Hypotension [Recovering/Resolving]
  - Intentional overdose [Recovering/Resolving]
  - Angioedema [Recovering/Resolving]
  - Metabolic acidosis [Recovering/Resolving]
  - Hyperglycaemia [Recovering/Resolving]
